FAERS Safety Report 6856750-0 (Version None)
Quarter: 2010Q2

REPORT INFORMATION
  Report Type: 
  Country: None (occurrence: None)
  Receive Date: 20100630
  Receipt Date: 20100408
  Transmission Date: 20101027
  Serious: No
  Sender: FDA-Public Use
  Company Number: 1000013112

PATIENT
  Sex: 0

DRUGS (1)
  1. BYSTOLIC [Suspect]
     Indication: HYPERTENSION
     Dosage: 5 MG (5 MG,  1 IN 1 D), ORAL
     Route: 048

REACTIONS (2)
  - DIZZINESS [None]
  - FATIGUE [None]
